FAERS Safety Report 24846001 (Version 1)
Quarter: 2025Q1

REPORT INFORMATION
  Report Type: Spontaneous
  Country: SE (occurrence: SE)
  Receive Date: 20250115
  Receipt Date: 20250115
  Transmission Date: 20250409
  Serious: Yes (Life-Threatening, Other)
  Sender: ALEXION PHARMACEUTICALS
  Company Number: SE-ASTRAZENECA-202501GLO010879SE

PATIENT
  Age: 55 Year

DRUGS (8)
  1. OMEPRAZOLE [Suspect]
     Active Substance: OMEPRAZOLE
     Indication: Dyspepsia
     Route: 065
  2. OMEPRAZOLE [Suspect]
     Active Substance: OMEPRAZOLE
     Route: 065
  3. OMEPRAZOLE [Suspect]
     Active Substance: OMEPRAZOLE
     Route: 065
  4. OMEPRAZOLE [Suspect]
     Active Substance: OMEPRAZOLE
     Route: 065
  5. NAPROXEN [Suspect]
     Active Substance: NAPROXEN
     Indication: Groin pain
     Route: 065
  6. NAPROXEN [Suspect]
     Active Substance: NAPROXEN
     Route: 065
  7. PARAFLEX [Suspect]
     Active Substance: CHLORZOXAZONE
     Indication: Groin pain
     Route: 065
  8. PARAFLEX [Suspect]
     Active Substance: CHLORZOXAZONE
     Route: 065

REACTIONS (7)
  - Hyperhidrosis [Recovering/Resolving]
  - Fatigue [Recovering/Resolving]
  - Chest pain [Recovering/Resolving]
  - Gingival erosion [Recovering/Resolving]
  - Suffocation feeling [Recovering/Resolving]
  - Haematemesis [Recovering/Resolving]
  - Alopecia [Recovering/Resolving]
